FAERS Safety Report 7735329-2 (Version None)
Quarter: 2011Q3

REPORT INFORMATION
  Report Type: 
  Country: None (occurrence: None)
  Receive Date: 20110907
  Receipt Date: 20110829
  Transmission Date: 20111222
  Serious: Yes (Hospitalization)
  Sender: FDA-Public Use
  Company Number: US-ASTRAZENECA-2011SE51689

PATIENT
  Age: 46 Year
  Sex: Male
  Weight: 86.2 kg

DRUGS (18)
  1. SEROQUEL [Suspect]
     Route: 048
     Dates: end: 20110515
  2. NEXIUM [Suspect]
     Indication: DYSPEPSIA
     Route: 048
     Dates: start: 20080101
  3. ROXICODONE [Concomitant]
     Indication: MIGRAINE
     Route: 048
     Dates: start: 20090101
  4. CELEBREX [Concomitant]
     Indication: FACIAL PAIN
     Route: 048
     Dates: start: 20000101
  5. PROAIR HFA [Concomitant]
     Indication: CHRONIC OBSTRUCTIVE PULMONARY DISEASE
     Dosage: AS REQUIRED
     Route: 055
     Dates: start: 20090101
  6. XANAX [Concomitant]
     Indication: PANIC ATTACK
     Route: 048
     Dates: start: 20090101
  7. SEROQUEL [Suspect]
     Route: 048
  8. LUNESTA [Concomitant]
     Indication: SLEEP DISORDER
     Route: 048
     Dates: start: 20080101
  9. SEROQUEL [Suspect]
     Route: 048
  10. SEROQUEL [Suspect]
     Route: 048
     Dates: end: 20110515
  11. SYMBICORT [Suspect]
     Indication: CHRONIC OBSTRUCTIVE PULMONARY DISEASE
     Dosage: TWO TIMES A DAY
     Route: 055
  12. TIZANIDINE HCL [Concomitant]
     Indication: MIGRAINE
     Route: 048
     Dates: start: 20060101
  13. CELEBREX [Concomitant]
     Indication: HEADACHE
     Route: 048
     Dates: start: 20000101
  14. SEROQUEL [Suspect]
     Indication: DEPRESSION
     Route: 048
     Dates: start: 20090101
  15. OXYCONTIN [Concomitant]
     Indication: MIGRAINE
     Route: 048
     Dates: start: 20090101
  16. XANAX XR [Concomitant]
     Indication: PANIC ATTACK
     Route: 048
     Dates: start: 20090101
  17. SPERIVA [Concomitant]
     Indication: CHRONIC OBSTRUCTIVE PULMONARY DISEASE
     Dosage: ONCE DAILY
     Route: 055
     Dates: start: 20100101
  18. SEROQUEL [Suspect]
     Indication: HEADACHE
     Route: 048
     Dates: start: 20090101

REACTIONS (5)
  - DYSPNOEA [None]
  - MIGRAINE [None]
  - PNEUMONIA [None]
  - OFF LABEL USE [None]
  - CHEST PAIN [None]
